FAERS Safety Report 12630729 (Version 2)
Quarter: 2016Q3

REPORT INFORMATION
  Report Type: Spontaneous
  Country: US (occurrence: US)
  Receive Date: 20160808
  Receipt Date: 20160818
  Transmission Date: 20161109
  Serious: No
  Sender: FDA-Public Use
  Company Number: US-PFIZER INC-2016370463

PATIENT
  Age: 63 Year
  Sex: Female
  Weight: 62.6 kg

DRUGS (3)
  1. NICOTINE TRANSDERMAL SYSTEM [Concomitant]
     Active Substance: NICOTINE
     Indication: SMOKING CESSATION THERAPY
     Dosage: 1 DF, DAILY (USE ONE A DAY)
     Dates: start: 20160801
  2. NICOTROL [Suspect]
     Active Substance: NICOTINE
     Indication: SMOKING CESSATION THERAPY
     Dosage: USE WHEN HAVE CRAVING, DID NOT READ HOW MANY SHE CAN USE
     Dates: start: 20160801
  3. NICOTINE MINTS [Concomitant]
     Dosage: ONE IN MOUTH, HAD TWO TODAY

REACTIONS (2)
  - Product quality issue [Unknown]
  - Drug ineffective [Unknown]

NARRATIVE: CASE EVENT DATE: 20160801
